FAERS Safety Report 4502834-1 (Version None)
Quarter: 2004Q4

REPORT INFORMATION
  Report Type: 
  Country: None (occurrence: None)
  Receive Date: 20041116
  Receipt Date: 20041116
  Transmission Date: 20050328
  Serious: Yes (Other)
  Sender: FDA-Public Use
  Company Number: None

PATIENT
  Age: 25 Year
  Sex: Female
  Weight: 54.4316 kg

DRUGS (1)
  1. PAXIL [Suspect]
     Indication: PANIC ATTACK
     Dosage: ONCE DAILY
     Dates: start: 20040802, end: 20041031

REACTIONS (6)
  - MIGRAINE WITH AURA [None]
  - PHOTOPSIA [None]
  - PUPILLARY DISORDER [None]
  - STRESS SYMPTOMS [None]
  - THERAPY NON-RESPONDER [None]
  - VISUAL FIELD DEFECT [None]
